FAERS Safety Report 7483806-4 (Version None)
Quarter: 2011Q2

REPORT INFORMATION
  Report Type: 
  Country: None (occurrence: None)
  Receive Date: 20110517
  Receipt Date: 20110512
  Transmission Date: 20111010
  Serious: Yes (Hospitalization, Other)
  Sender: FDA-Public Use
  Company Number: US-AMGEN-USASP2011020233

PATIENT
  Age: 6 Year
  Sex: Male

DRUGS (7)
  1. IVIGLOB-EX [Concomitant]
     Dosage: UNK UNK, Q4WK
  2. PREDNISONE [Concomitant]
     Dosage: 2.5 UNK, QD
     Route: 048
  3. CORTICOSTEROIDS [Concomitant]
  4. FERROUS SULFATE TAB [Concomitant]
     Dosage: 40 MG, QD
     Route: 048
  5. NPLATE [Suspect]
     Indication: IDIOPATHIC THROMBOCYTOPENIC PURPURA
     Dosage: 250 A?G, QWK
     Route: 058
     Dates: start: 20100205, end: 20101012
  6. FOLIC ACID [Concomitant]
     Dosage: 1 MG, QD
     Route: 048
  7. SYNAGIS [Concomitant]
     Dosage: UNK
     Dates: start: 20100224, end: 20100324

REACTIONS (2)
  - PAROXYSMAL NOCTURNAL HAEMOGLOBINURIA [None]
  - ECCHYMOSIS [None]
